FAERS Safety Report 22134079 (Version 1)
Quarter: 2023Q1

REPORT INFORMATION
  Report Type: Spontaneous
  Country: JP (occurrence: JP)
  Receive Date: 20230324
  Receipt Date: 20230324
  Transmission Date: 20230418
  Serious: Yes (Hospitalization, Other)
  Sender: FDA-Public Use
  Company Number: JP-COSETTE-CP2023JP000050

PATIENT
  Age: 69 Year
  Sex: Male

DRUGS (2)
  1. EFFIENT [Suspect]
     Active Substance: PRASUGREL HYDROCHLORIDE
     Indication: Chest pain
     Route: 048
  2. ASPIRIN [Suspect]
     Active Substance: ASPIRIN
     Indication: Chest pain
     Route: 048

REACTIONS (7)
  - Arterial injury [Unknown]
  - Gastrointestinal necrosis [Unknown]
  - Hepatic artery aneurysm [Unknown]
  - Acute kidney injury [Recovering/Resolving]
  - Pancreatic fistula [Recovering/Resolving]
  - Shock haemorrhagic [Unknown]
  - Abdominal wall haemorrhage [Unknown]
